FAERS Safety Report 5388810-8 (Version None)
Quarter: 2007Q3

REPORT INFORMATION
  Report Type: 
  Country: None (occurrence: None)
  Receive Date: 20070712
  Receipt Date: 20070630
  Transmission Date: 20080115
  Serious: Yes (Hospitalization)
  Sender: FDA-Public Use
  Company Number: DAV-AE-MTX-07-033

PATIENT
  Age: 59 Year
  Sex: Female

DRUGS (1)
  1. METHOTREXATE [Suspect]
     Indication: BREAST CANCER
     Dosage: 6 CYCLES
     Dates: start: 19970101

REACTIONS (12)
  - AORTIC VALVE STENOSIS [None]
  - ATRIAL FIBRILLATION [None]
  - CARDIAC MURMUR [None]
  - CARDIAC NEOPLASM MALIGNANT [None]
  - CEREBRAL HAEMORRHAGE [None]
  - CORONARY ARTERY STENOSIS [None]
  - ECHOCARDIOGRAM ABNORMAL [None]
  - ELECTROCARDIOGRAM T WAVE ABNORMAL [None]
  - HEADACHE [None]
  - INTRACRANIAL ANEURYSM [None]
  - MITRAL VALVE STENOSIS [None]
  - SPINDLE CELL SARCOMA [None]
